FAERS Safety Report 13368054 (Version 1)
Quarter: 2017Q1

REPORT INFORMATION
  Report Type: Spontaneous
  Country: FR (occurrence: FR)
  Receive Date: 20170324
  Receipt Date: 20170324
  Transmission Date: 20170429
  Serious: Yes (Other)
  Sender: FDA-Public Use
  Company Number: FR-ASTELLAS-2017US011479

PATIENT
  Age: 77 Year
  Sex: Male

DRUGS (2)
  1. NICARDIPINE [Interacting]
     Active Substance: NICARDIPINE
     Indication: HYPERTENSIVE CRISIS
     Route: 065
  2. ADVAGRAF [Suspect]
     Active Substance: TACROLIMUS
     Indication: PROPHYLAXIS
     Dosage: UNK UNK, UNKNOWN FREQ.
     Route: 065

REACTIONS (5)
  - Product use issue [Unknown]
  - Toxicity to various agents [Unknown]
  - Immunosuppressant drug level increased [Unknown]
  - Renal impairment [Unknown]
  - Drug interaction [Unknown]
